FAERS Safety Report 4630103-8 (Version None)
Quarter: 2005Q2

REPORT INFORMATION
  Report Type: 
  Country: None (occurrence: None)
  Receive Date: 20050406
  Receipt Date: 20050330
  Transmission Date: 20051028
  Serious: Yes (Death)
  Sender: FDA-Public Use
  Company Number: HQWYE692329NOV04

PATIENT
  Age: 71 Year
  Sex: Male

DRUGS (8)
  1. TAZOCIN (PIPERACILLIN/ TAZOBACTAM, INJECTION) [Suspect]
     Indication: PNEUMONIA
     Dosage: 2.5 G 2X PER 1 DAY, INTRAVENOUS DRIP
     Route: 041
     Dates: start: 20040905, end: 20040906
  2. NICARDIPINE (NICARDIPINE) [Concomitant]
  3. SOLU-CORTEF [Concomitant]
  4. PROCATEROL HCL [Concomitant]
  5. PHENOBARBITAL TAB [Concomitant]
  6. AMINOPHYLLIN [Concomitant]
  7. MANNITOL [Concomitant]
  8. DESMOPRESSIN ACETATE (DESMOPRESSIN ACETATE) [Concomitant]

REACTIONS (4)
  - BLOOD PRESSURE DECREASED [None]
  - CONCOMITANT DISEASE PROGRESSION [None]
  - HYPERBILIRUBINAEMIA [None]
  - SUBARACHNOID HAEMORRHAGE [None]
